FAERS Safety Report 21400293 (Version 1)
Quarter: 2022Q3

REPORT INFORMATION
  Report Type: Spontaneous
  Country: US (occurrence: None)
  Receive Date: 20220929
  Receipt Date: 20220929
  Transmission Date: 20221027
  Serious: Yes (Death)
  Sender: FDA-Public Use
  Company Number: None

PATIENT
  Age: 63 Year
  Sex: Male

DRUGS (2)
  1. TEMOZOLOMIDE [Suspect]
     Active Substance: TEMOZOLOMIDE
     Indication: Malignant melanoma
     Dosage: 100MG DAILY BY MOUTH?
     Route: 048
     Dates: start: 20220722, end: 20220909
  2. TEMOZOLOMIDE [Suspect]
     Active Substance: TEMOZOLOMIDE
     Indication: Malignant melanoma
     Dosage: 250MG DAILY BY MOUTH?
     Route: 048
     Dates: start: 202207, end: 20220909

REACTIONS (1)
  - Death [None]

NARRATIVE: CASE EVENT DATE: 20220909
